FAERS Safety Report 7524906-X (Version None)
Quarter: 2011Q2

REPORT INFORMATION
  Report Type: 
  Country: None (occurrence: None)
  Receive Date: 20110526
  Receipt Date: 20110517
  Transmission Date: 20111010
  Serious: Yes (Other)
  Sender: FDA-Public Use
  Company Number: IPC201105-001080

PATIENT
  Age: 65 Year
  Sex: Female

DRUGS (1)
  1. FUROSEMIDE [Suspect]
     Indication: CARDIAC FAILURE CONGESTIVE
     Dosage: 40 MG DAILY
     Dates: start: 20110201

REACTIONS (3)
  - THERAPEUTIC RESPONSE DECREASED [None]
  - URINARY RETENTION [None]
  - OEDEMA [None]
